FAERS Safety Report 5953943-1 (Version None)
Quarter: 2008Q4

REPORT INFORMATION
  Report Type: 
  Country: None (occurrence: None)
  Receive Date: 20081114
  Receipt Date: 20081104
  Transmission Date: 20090506
  Serious: Yes (Other)
  Sender: FDA-Public Use
  Company Number: JP-PFIZER INC-2008091497

PATIENT
  Age: 62 Year
  Sex: Female

DRUGS (2)
  1. XALATAN [Suspect]
     Indication: GLAUCOMA
     Route: 031
  2. OFLOXACIN [Concomitant]
     Route: 031

REACTIONS (1)
  - DIABETIC RETINOPATHY [None]
